FAERS Safety Report 8477239-1 (Version None)
Quarter: 2012Q2

REPORT INFORMATION
  Report Type: 
  Country: None (occurrence: None)
  Receive Date: 20120629
  Receipt Date: 20120625
  Transmission Date: 20120825
  Serious: Yes (Other)
  Sender: FDA-Public Use
  Company Number: US-BAYER-2012-063214

PATIENT
  Sex: Female

DRUGS (1)
  1. MIRENA [Suspect]
     Dosage: 20 MCG/24HR, CONT
     Dates: start: 20071001

REACTIONS (4)
  - VAGINAL HAEMORRHAGE [None]
  - AMENORRHOEA [None]
  - INSOMNIA [None]
  - ABDOMINAL PAIN [None]
